FAERS Safety Report 8112124-6 (Version None)
Quarter: 2012Q1

REPORT INFORMATION
  Report Type: 
  Country: None (occurrence: None)
  Receive Date: 20120203
  Receipt Date: 20120130
  Transmission Date: 20120608
  Serious: Yes (Death, Other)
  Sender: FDA-Public Use
  Company Number: US-PFIZER INC-2011310520

PATIENT
  Sex: Male

DRUGS (12)
  1. ATIVAN [Concomitant]
     Indication: ANXIETY
     Dosage: 0.5 MG, 1/2 - 1 TABLET, 3X/DAY, AS NEEDED
  2. PLAVIX [Concomitant]
     Dosage: 75 MG, 1X/DAY
  3. LANTUS [Concomitant]
     Dosage: 18 UNITS SQ AT BEDTIME
  4. VITAMIN B-12 [Concomitant]
     Dosage: 1 MCG IM MONTHLY
  5. REVATIO [Suspect]
     Dosage: 10 MG, 3X/DAY
     Route: 048
     Dates: start: 20110929, end: 20111012
  6. IRON SULFATETHIAMIN COMPOUND TAB [Concomitant]
     Dosage: 325 MG, 2X/DAY
  7. LASIX [Concomitant]
     Dosage: 40 MG, 2X/DAY
  8. LORTAB [Concomitant]
     Indication: PAIN
     Dosage: 5/500 EVERY 4 TO 6 HOURS PRN
  9. LEVOTHYROXINE [Concomitant]
     Dosage: 100 MCG DAILY
  10. PRAVASTATIN [Concomitant]
     Dosage: 40 MG, 1X/DAY
  11. LISINOPRIL [Concomitant]
     Dosage: 5 MG, 1X/DAY
  12. ONDANSETRON HCL [Concomitant]
     Indication: NAUSEA
     Dosage: 4 MG, EVERY 4-6 HOURS, AS NEEDED

REACTIONS (5)
  - PULMONARY HYPERTENSION [None]
  - B-CELL LYMPHOMA [None]
  - METABOLIC ALKALOSIS [None]
  - HYPOTENSION [None]
  - RIGHT VENTRICULAR FAILURE [None]
